FAERS Safety Report 7906358-0 (Version None)
Quarter: 2011Q4

REPORT INFORMATION
  Report Type: 
  Country: None (occurrence: None)
  Receive Date: 20111110
  Receipt Date: 20111107
  Transmission Date: 20120403
  Serious: No
  Sender: FDA-Public Use
  Company Number: US-PFIZER INC-2011272878

PATIENT
  Sex: Female
  Weight: 102 kg

DRUGS (6)
  1. ZOLOFT [Concomitant]
     Indication: PARKINSON'S DISEASE
     Dosage: 100 MG, UNK
  2. LOPRESSOR [Concomitant]
     Indication: HYPERTENSION
     Dosage: 100 MG, UNK
  3. SYNTHROID [Concomitant]
     Indication: THYROID DISORDER
     Dosage: 0.2 MG, UNK
  4. CARBIDOPA [Concomitant]
     Indication: PARKINSON'S DISEASE
     Dosage: 25-100 MG
  5. DIOVAN [Concomitant]
     Indication: HYPERTENSION
     Dosage: 160 MG, UNK
  6. CYTOMEL [Suspect]
     Indication: HORMONE REPLACEMENT THERAPY
     Dosage: 25 UG, DAILY
     Dates: start: 20111106, end: 20111106

REACTIONS (1)
  - ALOPECIA [None]
